FAERS Safety Report 8841220 (Version 2)
Quarter: 2012Q4

REPORT INFORMATION
  Report Type: 
  Country: BR (occurrence: BR)
  Receive Date: 20121015
  Receipt Date: 20121023
  Transmission Date: 20130627
  Serious: Yes (Other)
  Sender: FDA-Public Use
  Company Number: BR-ROCHE-1075724

PATIENT
  Age: 38 Year
  Sex: Female
  Weight: 55 kg

DRUGS (2)
  1. RIVOTRIL [Suspect]
     Indication: SOMNOLENCE
     Route: 065
  2. SERTRALINE [Concomitant]
     Indication: DEPRESSION
     Route: 065

REACTIONS (4)
  - Panic attack [Not Recovered/Not Resolved]
  - Drug ineffective [Unknown]
  - Depression [Not Recovered/Not Resolved]
  - Tremor [Recovered/Resolved]
